FAERS Safety Report 5467124-1 (Version None)
Quarter: 2007Q3

REPORT INFORMATION
  Report Type: 
  Country: None (occurrence: None)
  Receive Date: 20070921
  Receipt Date: 20070921
  Transmission Date: 20080115
  Serious: Yes (Other)
  Sender: FDA-Public Use
  Company Number: None

PATIENT
  Sex: Male
  Weight: 58.9676 kg

DRUGS (2)
  1. ZYPREXA [Suspect]
     Indication: AGGRESSION
     Dosage: 10MG Q HS PO
     Route: 048
     Dates: start: 20070716, end: 20070822
  2. ZYPREXA [Suspect]
     Indication: MODERATE MENTAL RETARDATION
     Dosage: 10MG Q HS PO
     Route: 048
     Dates: start: 20070716, end: 20070822

REACTIONS (1)
  - DYSKINESIA [None]
